FAERS Safety Report 7935824-7 (Version None)
Quarter: 2011Q4

REPORT INFORMATION
  Report Type: 
  Country: None (occurrence: None)
  Receive Date: 20111123
  Receipt Date: 20111116
  Transmission Date: 20120403
  Serious: Yes (Other)
  Sender: FDA-Public Use
  Company Number: US-JNJFOC-20111107350

PATIENT
  Sex: Female

DRUGS (17)
  1. HYDROCHLOROTHIAZIDE [Concomitant]
  2. VERAPAMIL [Concomitant]
  3. ADVAIR DISKUS 100/50 [Concomitant]
  4. MAXALT [Concomitant]
  5. REMICADE [Suspect]
     Indication: CROHN'S DISEASE
     Route: 042
     Dates: start: 20060501
  6. AZATHIOPRINE [Concomitant]
     Indication: CROHN'S DISEASE
     Dates: end: 20090101
  7. TRAMADOL HCL [Concomitant]
  8. ELAVIL [Concomitant]
  9. CEFDINIR [Concomitant]
  10. CELEXA [Concomitant]
  11. FLEXERIL [Concomitant]
  12. ZOFRAN [Concomitant]
     Indication: NAUSEA
  13. VENTOLIN [Concomitant]
  14. TOPROL-XL [Concomitant]
  15. TYLENOL W/ CODEINE NO. 3 [Concomitant]
  16. LEVOTHYROXINE SODIUM [Concomitant]
  17. ACYCLOVIR [Concomitant]

REACTIONS (1)
  - THYROID CANCER METASTATIC [None]
